FAERS Safety Report 6763479-6 (Version None)
Quarter: 2010Q2

REPORT INFORMATION
  Report Type: 
  Country: None (occurrence: None)
  Receive Date: 20100610
  Receipt Date: 20100510
  Transmission Date: 20101027
  Serious: No
  Sender: FDA-Public Use
  Company Number: US-BAYER-201015387BCC

PATIENT
  Age: 70 Year
  Sex: Female
  Weight: 75 kg

DRUGS (1)
  1. ALEVE (CAPLET) [Suspect]
     Indication: PAIN IN EXTREMITY
     Dosage: CONSUMER TOOK 1CAPLET ON THE FIRST DAY AND 2 CAPLETS ON THE SECOND DAY
     Route: 048
     Dates: start: 20100501, end: 20100501

REACTIONS (1)
  - PAIN IN EXTREMITY [None]
